FAERS Safety Report 6553018-7 (Version None)
Quarter: 2010Q1

REPORT INFORMATION
  Report Type: 
  Country: None (occurrence: None)
  Receive Date: 20100122
  Receipt Date: 20100112
  Transmission Date: 20100710
  Serious: Yes (Hospitalization)
  Sender: FDA-Public Use
  Company Number: 20100012

PATIENT
  Age: 50 Year
  Sex: Male

DRUGS (6)
  1. LIDOCAINE HYDROCHLORIDE INJ [Suspect]
     Indication: TENDON OPERATION
     Dosage: 20 ML 1% INJECTION NOS
  2. BUPIVACAINE HCL [Concomitant]
  3. MIDAZOLAM HCL [Concomitant]
  4. CEFAZOLIN [Concomitant]
  5. PROPOFOL [Concomitant]
  6. FENTANYL-100 [Concomitant]

REACTIONS (6)
  - DISCOMFORT [None]
  - DYSPHAGIA [None]
  - OBSTRUCTIVE AIRWAYS DISORDER [None]
  - PALATAL OEDEMA [None]
  - PHARYNGEAL OEDEMA [None]
  - SNORING [None]
